FAERS Safety Report 17159309 (Version 1)
Quarter: 2019Q4

REPORT INFORMATION
  Report Type: Spontaneous
  Country: US (occurrence: US)
  Receive Date: 20191215
  Receipt Date: 20191215
  Transmission Date: 20200122
  Serious: Yes (Other)
  Sender: FDA-Public Use
  Company Number: None

PATIENT
  Age: 42 Year
  Sex: Female
  Weight: 55.35 kg

DRUGS (1)
  1. CYTOTEC [Suspect]
     Active Substance: MISOPROSTOL
     Indication: INDUCED LABOUR

REACTIONS (7)
  - Full blood count decreased [None]
  - Caesarean section [None]
  - Hypertension [None]
  - Intra-abdominal haematoma [None]
  - Exposure during pregnancy [None]
  - Post procedural complication [None]
  - Haemorrhage [None]

NARRATIVE: CASE EVENT DATE: 20171210
